FAERS Safety Report 4781006-X (Version None)
Quarter: 2005Q3

REPORT INFORMATION
  Report Type: 
  Country: None (occurrence: None)
  Receive Date: 20050927
  Receipt Date: 20050927
  Transmission Date: 20060218
  Serious: Yes (Hospitalization)
  Sender: FDA-Public Use
  Company Number: None

PATIENT
  Age: 59 Year
  Sex: Male
  Weight: 100 kg

DRUGS (2)
  1. NAFCILLIN [Suspect]
     Indication: CSF BACTERIA IDENTIFIED
     Dosage: 12 GRAMS   Q24H   IV DRIP
     Route: 041
     Dates: start: 20050923, end: 20050926
  2. NAFCILLIN [Suspect]
     Indication: STAPHYLOCOCCAL INFECTION
     Dosage: 12 GRAMS   Q24H   IV DRIP
     Route: 041
     Dates: start: 20050923, end: 20050926

REACTIONS (2)
  - OBSTRUCTIVE AIRWAYS DISORDER [None]
  - SWELLING FACE [None]
